FAERS Safety Report 18762321 (Version 5)
Quarter: 2024Q4

REPORT INFORMATION
  Report Type: Spontaneous
  Country: CZ (occurrence: CZ)
  Receive Date: 20210120
  Receipt Date: 20241227
  Transmission Date: 20250115
  Serious: Yes (Other)
  Sender: Haleon PLC
  Company Number: CZ-GLAXOSMITHKLINE-CZ2021EME010227

PATIENT
  Age: 74 Year
  Sex: Female

DRUGS (4)
  1. DICLOFENAC [Suspect]
     Active Substance: DICLOFENAC
     Indication: Back pain
     Dosage: 75 MG, DURATION 25 YEARS
     Route: 065
  2. IBUPROFEN [Suspect]
     Active Substance: IBUPROFEN
     Indication: Back pain
     Dosage: TIME INTERVAL: AS NECESSARY: 400 MG, AS NEEDED
     Route: 065
  3. NIMESULIDE [Suspect]
     Active Substance: NIMESULIDE
     Indication: Back pain
     Dosage: 75 MG, QD, LONG-TERM USE OF NSAIDS
     Route: 065
  4. CELECOXIB [Suspect]
     Active Substance: CELECOXIB
     Indication: Back pain
     Dosage: UNK
     Route: 065

REACTIONS (4)
  - Gastrointestinal haemorrhage [Recovered/Resolved]
  - Contraindicated product administered [Unknown]
  - Intestinal haemorrhage [Unknown]
  - Functional gastrointestinal disorder [Unknown]
